FAERS Safety Report 14942328 (Version 4)
Quarter: 2018Q2

REPORT INFORMATION
  Report Type: Spontaneous
  Country: US (occurrence: US)
  Receive Date: 20180528
  Receipt Date: 20180629
  Transmission Date: 20180711
  Serious: No
  Sender: FDA-Public Use
  Company Number: US-BIOGEN-2018BI00583436

PATIENT
  Sex: Female

DRUGS (1)
  1. TYSABRI [Suspect]
     Active Substance: NATALIZUMAB
     Indication: MULTIPLE SCLEROSIS
     Dosage: INFUSED OVER 1 HOUR
     Route: 065
     Dates: start: 20070419

REACTIONS (10)
  - Asthenia [Not Recovered/Not Resolved]
  - Frustration tolerance decreased [Unknown]
  - Visual impairment [Unknown]
  - Stress [Unknown]
  - Uhthoff^s phenomenon [Unknown]
  - Anxiety [Not Recovered/Not Resolved]
  - Cerebral disorder [Unknown]
  - Mental disorder [Unknown]
  - Mobility decreased [Unknown]
  - Fatigue [Not Recovered/Not Resolved]
